FAERS Safety Report 14216583 (Version 4)
Quarter: 2018Q2

REPORT INFORMATION
  Report Type: Report from Study
  Country: US (occurrence: US)
  Receive Date: 20171122
  Receipt Date: 20180604
  Transmission Date: 20180711
  Serious: Yes (Hospitalization)
  Sender: FDA-Public Use
  Company Number: US-ACTELION-A-US2017-162818

PATIENT
  Age: 85 Year
  Sex: Female

DRUGS (1)
  1. UPTRAVI [Suspect]
     Active Substance: SELEXIPAG
     Indication: PULMONARY ARTERIAL HYPERTENSION
     Dosage: 400 MCG, BID
     Route: 048
     Dates: start: 20161214

REACTIONS (10)
  - Condition aggravated [Unknown]
  - Fall [Unknown]
  - Mobility decreased [Unknown]
  - Myalgia [Unknown]
  - Tremor [Unknown]
  - Stevens-Johnson syndrome [Unknown]
  - Concussion [Unknown]
  - Pain [Unknown]
  - Pain in extremity [Unknown]
  - Joint stiffness [Unknown]

NARRATIVE: CASE EVENT DATE: 20180524
